FAERS Safety Report 4492869-X (Version None)
Quarter: 2004Q4

REPORT INFORMATION
  Report Type: 
  Country: None (occurrence: None)
  Receive Date: 20041029
  Receipt Date: 20041015
  Transmission Date: 20050328
  Serious: Yes (Other)
  Sender: FDA-Public Use
  Company Number: CH-JNJFOC-20040908789

PATIENT
  Age: 30 Year
  Sex: Female

DRUGS (3)
  1. VERMOX [Suspect]
     Indication: GENITAL PRURITUS FEMALE
     Dosage: 100 MG, 2 IN 1 MONTH, ORAL
     Route: 048
     Dates: start: 20040614, end: 20040621
  2. FLUCONAZOLE [Suspect]
     Indication: GENITAL PRURITUS FEMALE
     Dosage: 150 MG, 2 IN 1 MONTH, ORAL
     Route: 048
     Dates: start: 20040501, end: 20040501
  3. ASACOL (MESALAZINE) UNSPECIFIED [Suspect]
     Indication: COLITIS ULCERATIVE
     Dosage: ORAL
     Route: 048

REACTIONS (7)
  - ALOPECIA TOTALIS [None]
  - ANGIONEUROTIC OEDEMA [None]
  - EOSINOPHILIA [None]
  - GENITAL PRURITUS FEMALE [None]
  - NAIL DISCOLOURATION [None]
  - NAIL DISORDER [None]
  - TENSION HEADACHE [None]
